FAERS Safety Report 5276890-X (Version None)
Quarter: 2007Q1

REPORT INFORMATION
  Report Type: 
  Country: None (occurrence: None)
  Receive Date: 20070327
  Receipt Date: 20070313
  Transmission Date: 20070707
  Serious: Yes (Other)
  Sender: FDA-Public Use
  Company Number: PHBS2007BR04826

PATIENT
  Age: 3 Month
  Sex: Male
  Weight: 5.5 kg

DRUGS (2)
  1. ZELMAC [Suspect]
     Dosage: MATERNAL 6 MG BID
     Dates: start: 20070306, end: 20070312
  2. VITAMIN D [Concomitant]
     Dosage: 2 DRP, QD

REACTIONS (2)
  - DIARRHOEA [None]
  - DRUG EXPOSURE VIA BREAST MILK [None]
